FAERS Safety Report 14746967 (Version 4)
Quarter: 2018Q4

REPORT INFORMATION
  Report Type: Spontaneous
  Country: DE (occurrence: DE)
  Receive Date: 20180411
  Receipt Date: 20181010
  Transmission Date: 20190204
  Serious: Yes (Hospitalization)
  Sender: FDA-Public Use
  Company Number: DE-PFIZER INC-2018146982

PATIENT
  Age: 65 Year
  Sex: Female
  Weight: 75 kg

DRUGS (6)
  1. CANIFUG [Concomitant]
     Indication: FUNGAL INFECTION
     Dosage: IN THE EVENING UNTIL END OF PACKAGE
     Route: 062
     Dates: start: 20180330
  2. SYMBICORT [Concomitant]
     Active Substance: BUDESONIDE\FORMOTEROL FUMARATE DIHYDRATE
  3. SALBUTAMOL [Concomitant]
     Active Substance: ALBUTEROL
  4. WELLNARA [Concomitant]
     Dosage: 1 DF, 1X/DAY (0-0-1)
     Route: 048
  5. TOVIAZ [Suspect]
     Active Substance: FESOTERODINE FUMARATE
     Indication: POLLAKIURIA
     Dosage: 1 DF, 1X/DAY (1-0-0)
     Route: 048
     Dates: start: 20180330, end: 20180330
  6. L-THYROXIN [Concomitant]
     Active Substance: LEVOTHYROXINE SODIUM
     Indication: AUTOIMMUNE THYROIDITIS
     Dosage: 1 DF, 1X/DAY (1-0-0)
     Route: 048

REACTIONS (8)
  - Drug hypersensitivity [Unknown]
  - Palpitations [Recovering/Resolving]
  - Pharyngeal hypoaesthesia [Unknown]
  - Feeling abnormal [Unknown]
  - Dry mouth [Recovered/Resolved]
  - Blood pressure increased [Recovering/Resolving]
  - Hypoaesthesia [Unknown]
  - Dyspnoea [Recovering/Resolving]

NARRATIVE: CASE EVENT DATE: 20180330
